FAERS Safety Report 9329330 (Version 1)
Quarter: 2013Q2

REPORT INFORMATION
  Report Type: Spontaneous
  Country: JP (occurrence: JP)
  Receive Date: 20130604
  Receipt Date: 20130604
  Transmission Date: 20140414
  Serious: Yes (Hospitalization)
  Sender: FDA-Public Use
  Company Number: JP-GLAXOSMITHKLINE-B0896107A

PATIENT
  Age: 82 Year
  Sex: Female

DRUGS (3)
  1. PAXIL [Suspect]
     Indication: DEPRESSION
     Dosage: 10MG PER DAY
     Route: 048
  2. DOGMATYL [Suspect]
     Indication: DEPRESSION
     Dosage: 50MG THREE TIMES PER DAY
     Route: 048
     Dates: start: 201304, end: 20130525
  3. EURODIN [Concomitant]
     Dosage: 1IUAX PER DAY
     Route: 048
     Dates: start: 201304, end: 20130525

REACTIONS (8)
  - Neuroleptic malignant syndrome [Unknown]
  - Serotonin syndrome [Unknown]
  - Asthenia [Unknown]
  - Dysarthria [Unknown]
  - Dyskinesia [Unknown]
  - Salivary hypersecretion [Unknown]
  - Fracture [Unknown]
  - Somnolence [Unknown]
